FAERS Safety Report 17257738 (Version 4)
Quarter: 2020Q3

REPORT INFORMATION
  Report Type: Spontaneous
  Country: US (occurrence: US)
  Receive Date: 20200110
  Receipt Date: 20200713
  Transmission Date: 20201102
  Serious: No
  Sender: FDA-Public Use
  Company Number: US-STRONGBRIDGE BIOPHARMA-2019-STR-000356

PATIENT
  Age: 14 Year
  Sex: Female

DRUGS (2)
  1. KEVEYIS [Suspect]
     Active Substance: DICHLORPHENAMIDE
     Indication: FAMILIAL PERIODIC PARALYSIS
     Dosage: 50 MG, QD
     Route: 048
     Dates: start: 20191213
  2. KEVEYIS [Suspect]
     Active Substance: DICHLORPHENAMIDE
     Dosage: 1/2 TABLET IN THE MORNING AND 1 TABLET IN THE EVENING
     Route: 048

REACTIONS (9)
  - Confusional state [Recovering/Resolving]
  - Paraesthesia [Not Recovered/Not Resolved]
  - Polyuria [Not Recovered/Not Resolved]
  - Wrong technique in product usage process [Recovering/Resolving]
  - Feeling abnormal [Recovering/Resolving]
  - Paraesthesia [Not Recovered/Not Resolved]
  - Thinking abnormal [Not Recovered/Not Resolved]
  - Alopecia [Not Recovered/Not Resolved]
  - Feeling abnormal [Recovering/Resolving]

NARRATIVE: CASE EVENT DATE: 20191213
